FAERS Safety Report 5454112-4 (Version None)
Quarter: 2007Q3

REPORT INFORMATION
  Report Type: 
  Country: None (occurrence: None)
  Receive Date: 20070917
  Receipt Date: 20070228
  Transmission Date: 20080115
  Serious: Yes (Other)
  Sender: FDA-Public Use
  Company Number: US-ASTRAZENECA-2006UW10821

PATIENT
  Sex: Female
  Weight: 107.3 kg

DRUGS (3)
  1. SEROQUEL [Suspect]
     Indication: BIPOLAR DISORDER
     Route: 048
     Dates: start: 20050101
  2. RISPERDAL [Concomitant]
     Dates: start: 20050101
  3. ZYPREXA [Concomitant]
     Dates: start: 20050101

REACTIONS (2)
  - HYPERGLYCAEMIA [None]
  - PANCREATITIS [None]
